FAERS Safety Report 7235318-0 (Version None)
Quarter: 2011Q1

REPORT INFORMATION
  Report Type: 
  Country: None (occurrence: None)
  Receive Date: 20110120
  Receipt Date: 20110117
  Transmission Date: 20110831
  Serious: Yes (Hospitalization)
  Sender: FDA-Public Use
  Company Number: DE-ABBOTT-11P-062-0698691-00

PATIENT
  Sex: Female

DRUGS (1)
  1. ERGENYL [Suspect]
     Indication: EPILEPSY
     Route: 065

REACTIONS (2)
  - NEUROLOGICAL DECOMPENSATION [None]
  - URINARY INCONTINENCE [None]
